FAERS Safety Report 7009324-5 (Version None)
Quarter: 2010Q3

REPORT INFORMATION
  Report Type: 
  Country: None (occurrence: None)
  Receive Date: 20100923
  Receipt Date: 20100910
  Transmission Date: 20110219
  Serious: Yes (Hospitalization)
  Sender: FDA-Public Use
  Company Number: US-SANOFI-AVENTIS-2010SA056823

PATIENT
  Sex: Male

DRUGS (11)
  1. ARAVA [Suspect]
     Indication: RHEUMATOID ARTHRITIS
     Route: 048
     Dates: start: 20000101, end: 20061012
  2. RITUXAN [Suspect]
     Indication: RHEUMATOID ARTHRITIS
     Route: 042
     Dates: start: 20061005, end: 20061005
  3. RITUXAN [Suspect]
     Route: 042
  4. LISINOPRIL [Concomitant]
  5. ATENOLOL [Concomitant]
  6. ETODOLAC [Concomitant]
     Dates: start: 20060707
  7. FINASTERIDE [Concomitant]
  8. FUROSEMIDE [Concomitant]
  9. OMEPRAZOLE [Concomitant]
  10. TAMSULOSIN HCL [Concomitant]
  11. TYLENOL W/ CODEINE NO. 3 [Concomitant]

REACTIONS (3)
  - DECREASED APPETITE [None]
  - FATIGUE [None]
  - TRANSAMINASES INCREASED [None]
